FAERS Safety Report 4525559-5 (Version None)
Quarter: 2004Q4

REPORT INFORMATION
  Report Type: 
  Country: None (occurrence: None)
  Receive Date: 20041116
  Receipt Date: 20040917
  Transmission Date: 20050328
  Serious: No
  Sender: FDA-Public Use
  Company Number: S04-USA-06435-01

PATIENT
  Age: 68 Year
  Sex: Female

DRUGS (7)
  1. NAMENDA [Suspect]
     Indication: DEMENTIA ALZHEIMER'S TYPE
     Dosage: 5 MG QD PO
     Route: 048
     Dates: start: 20040911
  2. CLONAZEPAM [Concomitant]
  3. PAXIL [Concomitant]
  4. AMBIEN [Concomitant]
  5. DITROPAN [Concomitant]
  6. FOSAMAX [Concomitant]
  7. CLARINEX [Concomitant]

REACTIONS (3)
  - ABDOMINAL PAIN [None]
  - AGITATION [None]
  - CONFUSIONAL STATE [None]
